FAERS Safety Report 4916175-1 (Version None)
Quarter: 2006Q1

REPORT INFORMATION
  Report Type: 
  Country: None (occurrence: None)
  Receive Date: 20060217
  Receipt Date: 20051003
  Transmission Date: 20060701
  Serious: Yes (Death, Hospitalization, Other)
  Sender: FDA-Public Use
  Company Number: US-MERCK-0510USA02634

PATIENT
  Age: 80 Year
  Sex: Male
  Weight: 93 kg

DRUGS (10)
  1. VIOXX [Suspect]
     Indication: ARTHRITIS
     Route: 048
     Dates: start: 20000303, end: 20020301
  2. ZANAFLEX [Concomitant]
     Route: 065
  3. ATIVAN [Concomitant]
     Route: 065
  4. METOPROLOL [Concomitant]
     Route: 065
  5. PREVACID [Concomitant]
     Route: 065
  6. ATROVENT [Concomitant]
     Route: 065
  7. FLOVENT [Concomitant]
     Route: 065
  8. EFFEXOR [Concomitant]
     Route: 065
  9. ASPIRIN [Concomitant]
     Route: 065
  10. ALBUTEROL [Concomitant]
     Route: 065

REACTIONS (11)
  - CATARACT [None]
  - CEREBROVASCULAR ACCIDENT [None]
  - DIZZINESS [None]
  - FALL [None]
  - HAEMATOMA [None]
  - HYPERTENSIVE CRISIS [None]
  - LOWER GASTROINTESTINAL HAEMORRHAGE [None]
  - MENTAL STATUS CHANGES [None]
  - OESOPHAGEAL STENOSIS [None]
  - PNEUMONIA [None]
  - TRANSIENT ISCHAEMIC ATTACK [None]
